FAERS Safety Report 10008690 (Version 2)
Quarter: 2014Q1

REPORT INFORMATION
  Report Type: Spontaneous
  Country: US (occurrence: US)
  Receive Date: 20140312
  Receipt Date: 20140312
  Transmission Date: 20141002
  Serious: No
  Sender: FDA-Public Use
  Company Number: US-INCYTE CORPORATION-2012IN000085

PATIENT
  Sex: 0

DRUGS (24)
  1. JAKAFI [Suspect]
     Indication: MYELOPROLIFERATIVE DISORDER
     Dosage: 20 MG, BID
     Route: 048
     Dates: start: 20120119, end: 20120213
  2. JAKAFI [Suspect]
     Dosage: 15 MG,  BID
     Route: 048
     Dates: start: 20120214, end: 20120430
  3. JAKAFI [Suspect]
     Dosage: 35 MG, 15MG IN THE MORNING AND 20 MG AT BEDTIME
     Route: 048
     Dates: start: 20120501, end: 20120515
  4. JAKAFI [Suspect]
     Dosage: 20 MG, BID
     Route: 048
     Dates: start: 20120516
  5. AMITRIPTYLINE [Concomitant]
     Dosage: 10 MG, HS
  6. CHLORHEXIDINE GLUCONATE [Concomitant]
     Dosage: UNK, BID
     Route: 048
  7. HYDROXYZINE [Concomitant]
     Dosage: 25 MG, Q8H
  8. LEVEMIR [Concomitant]
     Dosage: 40 UNITS IN AM, 30 UNITS IN PM
  9. LEVOCETIRIZINE [Concomitant]
     Dosage: 5 MG, QD
  10. LISINOPRIL [Concomitant]
     Dosage: 20 MG, QD
  11. TOPROL [Concomitant]
     Dosage: 200 MG, HS
  12. OMEPRAZOLE [Concomitant]
     Dosage: 20 MG, QD
  13. PRAVASTATIN [Concomitant]
     Dosage: 20 MG, QD
  14. ZOLOFT [Concomitant]
     Dosage: 100 MG, QD
  15. TRAMADOL [Concomitant]
     Dosage: 50 MG, PRN
  16. TRIAMCINOLONE [Concomitant]
     Dosage: APPLIED TO ITCHING AREA 2-3 TIMES DAILY
  17. ASPIRIN [Concomitant]
     Dosage: 81 MG, QD
  18. ALEVE [Concomitant]
     Dosage: 220 MG, PRN
  19. BENADRYL [Concomitant]
     Dosage: 25 MG, 3 TABKETS UP TO 4 TIMES QD
  20. COZAAR [Concomitant]
  21. FISH OIL [Concomitant]
  22. NORCO [Concomitant]
  23. CETAPHIL [Concomitant]
  24. VITAMIN D [Concomitant]

REACTIONS (24)
  - Dysgeusia [Not Recovered/Not Resolved]
  - Thrombocytopenia [Recovered/Resolved]
  - Anaemia [Recovered/Resolved]
  - Headache [Not Recovered/Not Resolved]
  - Nausea [Recovered/Resolved]
  - Vomiting [Recovered/Resolved]
  - Therapeutic response unexpected [Unknown]
  - Pruritus generalised [None]
  - Rash [Unknown]
  - Dry skin [Unknown]
  - Pyrexia [Not Recovered/Not Resolved]
  - Hot flush [Not Recovered/Not Resolved]
  - Night sweats [Not Recovered/Not Resolved]
  - Cough [Not Recovered/Not Resolved]
  - Stomatitis [Not Recovered/Not Resolved]
  - Weight increased [Not Recovered/Not Resolved]
  - Constipation [Not Recovered/Not Resolved]
  - Diarrhoea [Not Recovered/Not Resolved]
  - Insomnia [Unknown]
  - Hypoaesthesia [Not Recovered/Not Resolved]
  - Paraesthesia [Not Recovered/Not Resolved]
  - Anxiety [Unknown]
  - Depression [Unknown]
  - Dysphagia [Unknown]
